FAERS Safety Report 4887745-4 (Version None)
Quarter: 2005Q4

REPORT INFORMATION
  Report Type: 
  Country: None (occurrence: None)
  Receive Date: 20051221
  Receipt Date: 20050902
  Transmission Date: 20060501
  Serious: No
  Sender: FDA-Public Use
  Company Number: US-YAMANOUCHI-YPA20050375

PATIENT
  Age: 51 Year
  Sex: Male
  Weight: 86.1834 kg

DRUGS (1)
  1. VESICARE [Suspect]
     Indication: BLADDER DISORDER
     Dosage: 5 MG QD PO
     Route: 048
     Dates: end: 20050101

REACTIONS (1)
  - REFLUX OESOPHAGITIS [None]
